FAERS Safety Report 8613658-8 (Version None)
Quarter: 2012Q3

REPORT INFORMATION
  Report Type: 
  Country: None (occurrence: None)
  Receive Date: 20120823
  Receipt Date: 20120809
  Transmission Date: 20120928
  Serious: Yes (Life-Threatening, Hospitalization, Other)
  Sender: FDA-Public Use
  Company Number: JP-009507513-2012SP024677

PATIENT

DRUGS (39)
  1. NESINA [Concomitant]
     Indication: TYPE 2 DIABETES MELLITUS
     Dosage: UPDATE (17MAY2012): FORMULATION: POR
     Route: 048
     Dates: end: 20120412
  2. METFORMIN HCL [Concomitant]
     Dosage: 1500 UNK, UNK
     Route: 048
     Dates: start: 20120424
  3. ADALAT CC [Concomitant]
     Indication: HYPERTENSION
     Dosage: UPDATE (17MAY2012): FORMULATION:POR
     Route: 048
     Dates: end: 20120412
  4. DOXAZOSIN MESYLATE [Concomitant]
     Indication: HYPERTENSION
     Dosage: UPDATE (17MAY2012): FORMULATION: POR
     Route: 048
     Dates: end: 20120412
  5. AMARYL [Concomitant]
     Indication: TYPE 2 DIABETES MELLITUS
     Dosage: UPDATE (17MAY2012): FORMULATION: POR
     Route: 048
     Dates: end: 20120412
  6. AMARYL [Concomitant]
     Dosage: 0.5 UNK, UNK
     Route: 048
     Dates: start: 20120424
  7. KINEDAK [Concomitant]
     Indication: NEUROPATHY PERIPHERAL
     Dosage: UPDATE (17MAY2012): FORMULATION: POR
     Route: 048
     Dates: end: 20120412
  8. ALLOPURINOL [Concomitant]
     Indication: PRODUCT USED FOR UNKNOWN INDICATION
     Dosage: UPDATE (17MAY2012)
     Route: 048
     Dates: start: 20120413, end: 20120416
  9. PEG-INTRON [Suspect]
     Indication: HEPATITIS C
     Dosage: 1.5MCG/KG/WEEK
     Route: 058
     Dates: start: 20120410, end: 20120416
  10. OLMESARTAN MEDOXOMIL [Concomitant]
     Indication: HYPERTENSION
     Dosage: UPDATE (17MAY2012): FORMULATION: POR
     Route: 048
     Dates: end: 20120412
  11. TRICHLORMETHIAZIDE [Concomitant]
     Dosage: 1 UNK, UNK
     Route: 048
     Dates: start: 20120424
  12. LOXONIN [Concomitant]
     Dosage: 60 UNK, UNK
     Route: 048
     Dates: start: 20120424
  13. PRIMPERAN TAB [Concomitant]
     Indication: PRODUCT USED FOR UNKNOWN INDICATION
     Dosage: UPDATE (17MAY2012): 10 MG/DAY
     Route: 042
     Dates: start: 20120412, end: 20120419
  14. ADALAT CC [Concomitant]
     Route: 048
     Dates: end: 20120412
  15. OLMESARTAN MEDOXOMIL [Concomitant]
     Dosage: 40 UNK, UNK
     Route: 048
     Dates: start: 20120421
  16. VITAMIN B12 [Concomitant]
     Indication: NEUROPATHY PERIPHERAL
     Dosage: UPDATE (17MAY2012): FORMULATION: POR
     Route: 048
     Dates: start: 20120424
  17. LOXONIN [Concomitant]
     Route: 048
  18. GLYCYRON [Suspect]
     Indication: HEPATITIS C
     Dosage: 6 DF, QD
     Route: 048
     Dates: start: 20120614, end: 20120704
  19. DOXAZOSIN MESYLATE [Concomitant]
     Dosage: 1 UNK, UNK
     Route: 048
     Dates: start: 20120424
  20. KINEDAK [Concomitant]
     Route: 048
     Dates: start: 20120424
  21. LOXONIN [Concomitant]
     Indication: NEURALGIA
     Dosage: UPDATE (17MAY2012):60 MG/DAY
     Route: 065
     Dates: start: 20120410, end: 20120416
  22. LOXONIN [Concomitant]
     Dosage: 120 MG, QD
     Route: 048
  23. POTASSIUM CHLORIDE [Concomitant]
     Indication: PRODUCT USED FOR UNKNOWN INDICATION
     Dosage: UPDATE (17MAY2012): 20 MEQ KIT
     Route: 042
     Dates: start: 20120417, end: 20120421
  24. LYRICA [Concomitant]
     Indication: NEUROPATHY PERIPHERAL
     Dosage: 25 MG, QD
     Route: 048
     Dates: start: 20120531, end: 20120614
  25. LENDORMIN D [Concomitant]
     Indication: INSOMNIA
     Route: 048
  26. REBETOL [Suspect]
     Indication: HEPATITIS C
     Dosage: 800 MG, QD
     Route: 048
     Dates: start: 20120410, end: 20120412
  27. ADALAT CC [Concomitant]
     Dosage: 60 UNK, UNK
     Route: 048
     Dates: start: 20120417
  28. METFORMIN HCL [Concomitant]
     Indication: TYPE 2 DIABETES MELLITUS
     Dosage: UPDATE (17MAY2012): TRADE NAME: METGLUCO, FORMULATION: POR
     Route: 048
     Dates: end: 20120412
  29. LENDORMIN [Concomitant]
     Indication: INSOMNIA
     Dosage: UPDATE (17MAY2012): FORMULATION: POR
     Route: 048
  30. ROHYPNOL [Concomitant]
     Indication: INSOMNIA
     Dosage: UPDATE (17MAY2012): FORMULATION: POR
     Route: 048
     Dates: start: 20120418
  31. ELECTROLYTES (UNSPECIFIED) (+) SODIUM LACTATE [Concomitant]
     Indication: PRODUCT USED FOR UNKNOWN INDICATION
     Dosage: UPDATE (17MAY2012)
     Route: 042
     Dates: start: 20120413, end: 20120421
  32. GLYCYRON [Concomitant]
     Route: 048
     Dates: start: 20120614, end: 20120704
  33. REBETOL [Suspect]
     Dosage: 600 MG, QD
     Route: 048
     Dates: start: 20120413, end: 20120416
  34. TELAVIC [Suspect]
     Indication: HEPATITIS C
     Dosage: 2250 MG, QD
     Route: 048
     Dates: start: 20120410, end: 20120416
  35. TRICHLORMETHIAZIDE [Concomitant]
     Indication: HYPERTENSION
     Dosage: UPDATE (17MAY2012): FORMOLATION: POR
     Route: 048
     Dates: end: 20120412
  36. NESINA [Concomitant]
     Dosage: 25 UNK, UNK
     Route: 048
     Dates: start: 20120424
  37. URSO 250 [Concomitant]
     Indication: HEPATITIS C
     Dosage: UPDATE (17MAY2012):
     Route: 048
     Dates: start: 20120424
  38. VITAMIN E [Concomitant]
     Indication: NEUROPATHY PERIPHERAL
     Dosage: UPDATE (17MAY2012):
     Route: 048
     Dates: start: 20120424
  39. ADALAT CC [Concomitant]
     Route: 048
     Dates: start: 20120417

REACTIONS (5)
  - GENERAL PHYSICAL HEALTH DETERIORATION [None]
  - DIZZINESS [None]
  - VOMITING [None]
  - NAUSEA [None]
  - RENAL IMPAIRMENT [None]
